FAERS Safety Report 15899172 (Version 2)
Quarter: 2019Q1

REPORT INFORMATION
  Report Type: Report from Study
  Country: US (occurrence: US)
  Receive Date: 20190201
  Receipt Date: 20190211
  Transmission Date: 20190417
  Serious: Yes (Hospitalization)
  Sender: FDA-Public Use
  Company Number: US-EMD SERONO-9067832

PATIENT
  Age: 53 Year
  Sex: Male
  Weight: 75 kg

DRUGS (6)
  1. HYDROMORPHONE [Concomitant]
     Active Substance: HYDROMORPHONE
     Indication: PRODUCT USED FOR UNKNOWN INDICATION
     Dosage: 1 - 2 MG
     Route: 048
     Dates: start: 20190109
  2. PREGABALIN. [Concomitant]
     Active Substance: PREGABALIN
     Indication: PRODUCT USED FOR UNKNOWN INDICATION
     Route: 048
     Dates: start: 20180221
  3. SYMBICORT [Concomitant]
     Active Substance: BUDESONIDE\FORMOTEROL FUMARATE DIHYDRATE
     Indication: PRODUCT USED FOR UNKNOWN INDICATION
     Dosage: 160/4.5MCG 1 PUFF
     Dates: start: 20181212
  4. PROVAIR [Concomitant]
     Indication: PRODUCT USED FOR UNKNOWN INDICATION
     Dosage: 90 MCG 1-2 PUFFS
     Dates: start: 20190116
  5. AVELUMAB [Suspect]
     Active Substance: AVELUMAB
     Indication: THYMOMA
     Dosage: 797 MG
     Route: 042
     Dates: start: 20171115, end: 20181212
  6. ADDERALL [Concomitant]
     Active Substance: AMPHETAMINE ASPARTATE\AMPHETAMINE SULFATE\DEXTROAMPHETAMINE SACCHARATE\DEXTROAMPHETAMINE SULFATE
     Indication: PRODUCT USED FOR UNKNOWN INDICATION
     Dosage: DAILY, AS NEEDED
     Route: 048
     Dates: start: 20181213

REACTIONS (4)
  - Dyspnoea [Unknown]
  - Pneumonitis [Unknown]
  - Lung infection [Unknown]
  - Hypoxia [Unknown]

NARRATIVE: CASE EVENT DATE: 20190123
